FAERS Safety Report 10268814 (Version 3)
Quarter: 2014Q3

REPORT INFORMATION
  Report Type: Spontaneous
  Country: JP (occurrence: JP)
  Receive Date: 20140630
  Receipt Date: 20140722
  Transmission Date: 20150326
  Serious: Yes (Death, Hospitalization)
  Sender: FDA-Public Use
  Company Number: JP-NAPPMUNDI-GBR-2014-0018688

PATIENT
  Age: 62 Year
  Sex: Male

DRUGS (5)
  1. TRYPTANOL                          /00002202/ [Concomitant]
     Active Substance: AMITRIPTYLINE
     Route: 048
  2. VOLTAREN [Concomitant]
     Active Substance: DICLOFENAC SODIUM
     Dosage: 1 DF, DAILY
     Route: 054
  3. LYRICA [Concomitant]
     Active Substance: PREGABALIN
     Dosage: 2 DF, DAILY
     Route: 048
  4. NORSPAN [Suspect]
     Active Substance: BUPRENORPHINE
     Indication: BACK PAIN
     Dosage: 10 MCG, Q1H
     Route: 062
     Dates: start: 201404, end: 20140526
  5. NORSPAN [Suspect]
     Active Substance: BUPRENORPHINE
     Indication: RENAL FAILURE
     Dosage: 5 MCG, Q1H
     Route: 062
     Dates: start: 20140306, end: 201404

REACTIONS (4)
  - Hypopnoea [Recovered/Resolved]
  - Altered state of consciousness [Recovered/Resolved]
  - Fall [Recovered/Resolved]
  - Respiratory failure [Fatal]

NARRATIVE: CASE EVENT DATE: 20140525
